FAERS Safety Report 17451686 (Version 1)
Quarter: 2020Q1

REPORT INFORMATION
  Report Type: Spontaneous
  Country: US (occurrence: US)
  Receive Date: 20200224
  Receipt Date: 20200224
  Transmission Date: 20200409
  Serious: Yes (Hospitalization, Other)
  Sender: FDA-Public Use
  Company Number: None

PATIENT
  Age: 76 Year
  Sex: Female
  Weight: 72 kg

DRUGS (3)
  1. OXYCODONE [Suspect]
     Active Substance: OXYCODONE
     Indication: PAIN
     Dates: start: 20000101, end: 20200207
  2. OXYCODONE [Concomitant]
     Active Substance: OXYCODONE
     Dates: start: 20000101, end: 20200207
  3. OXYCODONE [Suspect]
     Active Substance: OXYCODONE
     Indication: NEUROPATHY PERIPHERAL
     Dates: start: 20000101, end: 20200207

REACTIONS (3)
  - Decreased interest [None]
  - Therapy cessation [None]
  - Bedridden [None]

NARRATIVE: CASE EVENT DATE: 20200205
